FAERS Safety Report 17447902 (Version 3)
Quarter: 2020Q2

REPORT INFORMATION
  Report Type: Report from Study
  Country: None (occurrence: US)
  Receive Date: 20200222
  Receipt Date: 20200525
  Transmission Date: 20200713
  Serious: Yes (Hospitalization, Other)
  Sender: FDA-Public Use
  Company Number: US-ABBVIE-20K-163-3286192-00

PATIENT
  Age: 74 Year
  Sex: Female
  Weight: 78.09 kg

DRUGS (3)
  1. HUMIRA [Suspect]
     Active Substance: ADALIMUMAB
     Indication: CROHN^S DISEASE
     Route: 058
     Dates: start: 2019, end: 20200306
  2. IMODIUM [Concomitant]
     Active Substance: LOPERAMIDE HYDROCHLORIDE
     Indication: DIARRHOEA
     Route: 058
  3. HUMIRA [Suspect]
     Active Substance: ADALIMUMAB
     Route: 058

REACTIONS (6)
  - Gastrointestinal scarring [Unknown]
  - Respiratory syncytial virus infection [Recovered/Resolved]
  - Ileostomy [Unknown]
  - Exposure to communicable disease [Recovered/Resolved]
  - Large intestinal obstruction [Unknown]
  - Diarrhoea [Recovered/Resolved]

NARRATIVE: CASE EVENT DATE: 2020
